FAERS Safety Report 19028835 (Version 1)
Quarter: 2021Q1

REPORT INFORMATION
  Report Type: Report from Study
  Country: None (occurrence: US)
  Receive Date: 20210319
  Receipt Date: 20210319
  Transmission Date: 20210420
  Serious: Yes (Hospitalization, Other)
  Sender: FDA-Public Use
  Company Number: US-ABBVIE-21K-163-3813573-00

PATIENT
  Sex: Male

DRUGS (5)
  1. RINVOQ [Suspect]
     Active Substance: UPADACITINIB
     Indication: RHEUMATOID ARTHRITIS
     Route: 048
     Dates: start: 202102
  2. OXYCODONE [Concomitant]
     Active Substance: OXYCODONE
     Indication: PAIN
  3. INSULIN [Concomitant]
     Active Substance: INSULIN NOS
     Indication: DIABETES MELLITUS
  4. XANAX [Concomitant]
     Active Substance: ALPRAZOLAM
     Indication: ANXIETY
     Dosage: WAS ON 2 MG NOW ON 1 MG BUT UNSURE HOW OFTEN
  5. MORPHINE [Concomitant]
     Active Substance: MORPHINE
     Indication: PAIN

REACTIONS (13)
  - Stress [Not Recovered/Not Resolved]
  - Joint lock [Recovered/Resolved]
  - Mental disorder [Unknown]
  - Arthralgia [Recovered/Resolved]
  - Joint noise [Recovered/Resolved]
  - Emotional distress [Not Recovered/Not Resolved]
  - Skin discharge [Unknown]
  - Diabetes mellitus [Unknown]
  - Dry skin [Recovering/Resolving]
  - Memory impairment [Not Recovered/Not Resolved]
  - Illness [Recovered/Resolved]
  - Pneumonia [Unknown]
  - Diabetic coma [Unknown]
